FAERS Safety Report 9868264 (Version 2)
Quarter: 2014Q1

REPORT INFORMATION
  Report Type: Spontaneous
  Country: US (occurrence: US)
  Receive Date: 20140204
  Receipt Date: 20140307
  Transmission Date: 20141002
  Serious: Yes (Other)
  Sender: FDA-Public Use
  Company Number: US-TEVA-460560USA

PATIENT
  Sex: Female

DRUGS (10)
  1. RABEPRAZOLE [Suspect]
     Dosage: 40 MILLIGRAM DAILY;
     Route: 048
     Dates: start: 20140121, end: 20140123
  2. CVS ACID REDUCER [Suspect]
  3. BABY ASPIRIN [Concomitant]
  4. VITAMINS [Concomitant]
  5. IRON [Concomitant]
  6. XANAX [Concomitant]
  7. PROZAC [Concomitant]
  8. AMBIEN [Concomitant]
  9. CYANOCOBALAMIN-TANNIN COMPLEX [Concomitant]
  10. RECLAST [Concomitant]

REACTIONS (5)
  - Skin discolouration [Unknown]
  - Dyspepsia [Recovered/Resolved]
  - Local swelling [Unknown]
  - Weight increased [Unknown]
  - Discomfort [Unknown]
